FAERS Safety Report 16497693 (Version 3)
Quarter: 2019Q4

REPORT INFORMATION
  Report Type: Spontaneous
  Country: JP (occurrence: JP)
  Receive Date: 20190628
  Receipt Date: 20191015
  Transmission Date: 20200122
  Serious: Yes (Hospitalization, Other)
  Sender: FDA-Public Use
  Company Number: JP-ELI_LILLY_AND_COMPANY-JP201906011724

PATIENT
  Age: 60 Year
  Sex: Female
  Weight: 47 kg

DRUGS (5)
  1. ERBITUX [Suspect]
     Active Substance: CETUXIMAB
     Indication: LIP AND/OR ORAL CAVITY CANCER
     Dosage: UNK UNK, UNKNOWN
     Route: 041
     Dates: start: 20171128, end: 20180612
  2. PREDNISOLONE. [Suspect]
     Active Substance: PREDNISOLONE
     Indication: DERMATITIS
     Dosage: 5 MG, DAILY
     Route: 048
     Dates: start: 20170718
  3. GASTER [FAMOTIDINE] [Concomitant]
     Indication: PRODUCT USED FOR UNKNOWN INDICATION
     Dosage: 40 MG, DAILY
     Route: 048
     Dates: start: 20180126
  4. PACLITAXEL. [Concomitant]
     Active Substance: PACLITAXEL
     Indication: LIP AND/OR ORAL CAVITY CANCER
     Dosage: 80 MG, WEEKLY (1/W)
     Route: 041
     Dates: start: 20171128, end: 20180612
  5. MINOMYCIN [Concomitant]
     Active Substance: MINOCYCLINE HYDROCHLORIDE
     Indication: PRODUCT USED FOR UNKNOWN INDICATION
     Dosage: 100 MG, BID
     Route: 048
     Dates: start: 20171128, end: 20180612

REACTIONS (3)
  - Off label use [Unknown]
  - Pneumomediastinum [Recovered/Resolved]
  - Pneumatosis intestinalis [Recovering/Resolving]

NARRATIVE: CASE EVENT DATE: 20180608
